FAERS Safety Report 15964064 (Version 2)
Quarter: 2019Q1

REPORT INFORMATION
  Report Type: Spontaneous
  Country: US (occurrence: US)
  Receive Date: 20190214
  Receipt Date: 20190320
  Transmission Date: 20190417
  Serious: Yes (Other)
  Sender: FDA-Public Use
  Company Number: US-MMM-WFXJAPSZ

PATIENT
  Sex: Female

DRUGS (1)
  1. SUBLOCADE [Suspect]
     Active Substance: BUPRENORPHINE
     Indication: DRUG DEPENDENCE
     Dosage: 300MG, QMO (TWO INJECTIONS)
     Route: 065
     Dates: start: 20190108

REACTIONS (2)
  - Drug delivery system removal [Recovered/Resolved]
  - Uterine disorder [Unknown]
